FAERS Safety Report 5897812-4 (Version None)
Quarter: 2008Q3

REPORT INFORMATION
  Report Type: 
  Country: None (occurrence: None)
  Receive Date: 20080912
  Receipt Date: 20080916
  Transmission Date: 20090109
  Serious: Yes (Hospitalization)
  Sender: FDA-Public Use
  Company Number: 2008SP019059

PATIENT
  Age: 6 Year
  Sex: Male

DRUGS (10)
  1. NOXAFIL [Suspect]
     Indication: LOWER RESPIRATORY TRACT INFECTION FUNGAL
     Dosage: 200 MG;QID
     Dates: start: 20080801
  2. AMPHOTERICIN B [Concomitant]
  3. MERCAPTOPURINE [Concomitant]
  4. MEROPENEM [Concomitant]
  5. NEUPOGEN [Concomitant]
  6. ESKETAMINE [Concomitant]
  7. GABAPENTIN [Concomitant]
  8. CIPROFLOXACIN HCL [Concomitant]
  9. CO-TRIMOXAZOLE [Concomitant]
  10. ACETAMINOPHEN [Concomitant]

REACTIONS (1)
  - GRAND MAL CONVULSION [None]
